FAERS Safety Report 16658220 (Version 1)
Quarter: 2019Q3

REPORT INFORMATION
  Report Type: Spontaneous
  Country: US (occurrence: US)
  Receive Date: 20190801
  Receipt Date: 20190801
  Transmission Date: 20191004
  Serious: No
  Sender: FDA-Public Use
  Company Number: None

PATIENT
  Age: 61 Year
  Sex: Female

DRUGS (5)
  1. PHENYTOIN. [Suspect]
     Active Substance: PHENYTOIN
     Route: 048
     Dates: start: 20181101
  2. OLANZAPINE. [Concomitant]
     Active Substance: OLANZAPINE
  3. FLUPHENAZINE [Concomitant]
     Active Substance: FLUPHENAZINE
  4. HALOPERIDOL. [Concomitant]
     Active Substance: HALOPERIDOL
  5. RISPERIDONE. [Concomitant]
     Active Substance: RISPERIDONE

REACTIONS (1)
  - Seizure [None]

NARRATIVE: CASE EVENT DATE: 20181115
